FAERS Safety Report 21424317 (Version 2)
Quarter: 2022Q4

REPORT INFORMATION
  Report Type: Report from Study
  Country: KR (occurrence: KR)
  Receive Date: 20221007
  Receipt Date: 20221011
  Transmission Date: 20230112
  Serious: Yes (Hospitalization)
  Sender: FDA-Public Use
  Company Number: KR-009507513-2207KOR000040

PATIENT
  Sex: Female

DRUGS (7)
  1. PEMBROLIZUMAB [Suspect]
     Active Substance: PEMBROLIZUMAB
     Indication: Oropharyngeal cancer
     Dosage: UNK
     Dates: start: 20220601, end: 20220601
  2. PEMBROLIZUMAB [Suspect]
     Active Substance: PEMBROLIZUMAB
     Dosage: UNK
     Dates: start: 20220630, end: 20220630
  3. PEMBROLIZUMAB [Suspect]
     Active Substance: PEMBROLIZUMAB
     Dosage: UNK
     Dates: start: 20220728, end: 20220728
  4. PEMBROLIZUMAB [Suspect]
     Active Substance: PEMBROLIZUMAB
     Dosage: UNK, INJ 100MG/4ML, QUANTITY 2, DAYS 1
     Dates: start: 20220826, end: 20220826
  5. PEMBROLIZUMAB [Suspect]
     Active Substance: PEMBROLIZUMAB
     Dosage: UNK
     Dates: start: 20220922, end: 20220922
  6. FLUOROURACIL [Suspect]
     Active Substance: FLUOROURACIL
     Indication: Oropharyngeal cancer
     Dosage: UNK
  7. CISPLATIN [Suspect]
     Active Substance: CISPLATIN
     Indication: Oropharyngeal cancer
     Dosage: UNK

REACTIONS (9)
  - Adverse event [Unknown]
  - Adverse event [Unknown]
  - Adverse event [Unknown]
  - Adverse event [Unknown]
  - Adverse event [Unknown]
  - Product use issue [Unknown]
  - Product use issue [Unknown]
  - Product use issue [Unknown]
  - Product use issue [Unknown]

NARRATIVE: CASE EVENT DATE: 20220101
